FAERS Safety Report 5917101-9 (Version None)
Quarter: 2008Q4

REPORT INFORMATION
  Report Type: 
  Country: None (occurrence: None)
  Receive Date: 20081014
  Receipt Date: 20081002
  Transmission Date: 20090506
  Serious: Yes (Other)
  Sender: FDA-Public Use
  Company Number: US-WYE-H06208708

PATIENT
  Age: 34 Year
  Sex: Female
  Weight: 59.02 kg

DRUGS (5)
  1. EFFEXOR XR [Suspect]
     Indication: DEPRESSION
     Dosage: 75 MG NIGHTLY
     Route: 048
     Dates: start: 20070101, end: 20080928
  2. AMBIEN [Suspect]
     Indication: INSOMNIA
     Dosage: AS NEEDED
     Dates: start: 20080929
  3. RESTORIL [Suspect]
     Indication: INSOMNIA
     Dosage: UNKNOWN AS NEEDED
     Dates: start: 20080929
  4. NEBIVOLOL HCL [Concomitant]
     Indication: HYPERTENSION
     Dosage: UNKNOWN
  5. PRISTIQ [Suspect]
     Indication: MOOD SWINGS
     Route: 048
     Dates: start: 20080929

REACTIONS (10)
  - ANGER [None]
  - BIPOLAR DISORDER [None]
  - CRYING [None]
  - DEPRESSED LEVEL OF CONSCIOUSNESS [None]
  - DEPRESSION [None]
  - DRUG INEFFECTIVE [None]
  - INSOMNIA [None]
  - MOOD SWINGS [None]
  - MORBID THOUGHTS [None]
  - PARANOIA [None]
